FAERS Safety Report 10443879 (Version 1)
Quarter: 2014Q3

REPORT INFORMATION
  Report Type: Spontaneous
  Country: US (occurrence: None)
  Receive Date: 20140909
  Receipt Date: 20140909
  Transmission Date: 20150326
  Serious: Yes (Other)
  Sender: FDA-Public Use
  Company Number: None

PATIENT
  Age: 67 Year
  Sex: Male

DRUGS (1)
  1. H.P. ACTHAR [Suspect]
     Active Substance: CORTICOTROPIN
     Indication: MULTIPLE SCLEROSIS
     Route: 058
     Dates: start: 20140821, end: 20140825

REACTIONS (2)
  - Protein urine present [None]
  - Glucose urine present [None]

NARRATIVE: CASE EVENT DATE: 20140822
